FAERS Safety Report 22182670 (Version 2)
Quarter: 2023Q4

REPORT INFORMATION
  Report Type: Report from Study
  Country: DE (occurrence: DE)
  Receive Date: 20230406
  Receipt Date: 20231016
  Transmission Date: 20240109
  Serious: Yes (Other)
  Sender: FDA-Public Use
  Company Number: DE-JNJFOC-20230304959

PATIENT
  Age: 70 Year
  Sex: Female
  Weight: 70 kg

DRUGS (58)
  1. DEXAMETHASONE [Suspect]
     Active Substance: DEXAMETHASONE
     Indication: Plasma cell myeloma
     Dosage: CYCLE 2
     Route: 042
     Dates: start: 20230301
  2. DEXAMETHASONE [Suspect]
     Active Substance: DEXAMETHASONE
     Dosage: CYCLE 1
     Route: 042
     Dates: start: 20230118
  3. DEXAMETHASONE [Suspect]
     Active Substance: DEXAMETHASONE
     Dosage: CYCLE 2
     Route: 042
     Dates: start: 20230308
  4. DEXAMETHASONE [Suspect]
     Active Substance: DEXAMETHASONE
     Dosage: CYCLE 1
     Route: 042
     Dates: start: 20230117
  5. DEXAMETHASONE [Suspect]
     Active Substance: DEXAMETHASONE
     Dosage: CYCLE 1
     Route: 042
     Dates: start: 20230201
  6. DEXAMETHASONE [Suspect]
     Active Substance: DEXAMETHASONE
     Dosage: CYCLE 2
     Route: 042
     Dates: start: 20230222
  7. DEXAMETHASONE [Suspect]
     Active Substance: DEXAMETHASONE
     Dosage: CYCLE 1
     Route: 042
     Dates: start: 20230125
  8. DEXAMETHASONE [Suspect]
     Active Substance: DEXAMETHASONE
     Dosage: CYCLE 3
     Route: 042
     Dates: start: 20230322
  9. DEXAMETHASONE [Suspect]
     Active Substance: DEXAMETHASONE
     Dosage: CYCLE 8
     Route: 042
     Dates: start: 20230809
  10. DEXAMETHASONE [Suspect]
     Active Substance: DEXAMETHASONE
     Dosage: CYCLE 4
     Route: 042
     Dates: start: 20230419
  11. DEXAMETHASONE [Suspect]
     Active Substance: DEXAMETHASONE
     Dosage: CYCLE 5
     Route: 042
     Dates: start: 20230517
  12. DEXAMETHASONE [Suspect]
     Active Substance: DEXAMETHASONE
     Dosage: CYCLE 5
     Route: 042
     Dates: start: 20230315
  13. DEXAMETHASONE [Suspect]
     Active Substance: DEXAMETHASONE
     Dosage: CYCLE 5
     Route: 042
     Dates: start: 20230712
  14. DEXAMETHASONE [Suspect]
     Active Substance: DEXAMETHASONE
     Dosage: CYCLE 5
     Route: 042
     Dates: start: 20230906
  15. DEXAMETHASONE [Suspect]
     Active Substance: DEXAMETHASONE
     Dosage: CYCLE 5
     Route: 042
     Dates: start: 20230614
  16. LENALIDOMIDE [Suspect]
     Active Substance: LENALIDOMIDE
     Indication: Plasma cell myeloma
     Dosage: CYCLE 2
     Route: 048
     Dates: start: 20230222
  17. LENALIDOMIDE [Suspect]
     Active Substance: LENALIDOMIDE
     Dosage: CYCLE 1
     Route: 048
     Dates: start: 20230117, end: 20230206
  18. LENALIDOMIDE [Suspect]
     Active Substance: LENALIDOMIDE
     Dosage: CYCLE 8
     Route: 048
     Dates: start: 20230809, end: 20230829
  19. LENALIDOMIDE [Suspect]
     Active Substance: LENALIDOMIDE
     Dosage: CYCLE 7
     Route: 048
     Dates: start: 20230712, end: 20230801
  20. LENALIDOMIDE [Suspect]
     Active Substance: LENALIDOMIDE
     Dosage: CYCLE 7
     Route: 048
     Dates: start: 20230712, end: 20230801
  21. LENALIDOMIDE [Suspect]
     Active Substance: LENALIDOMIDE
     Dosage: CYCLE 3
     Route: 048
     Dates: start: 20230322, end: 20230411
  22. LENALIDOMIDE [Suspect]
     Active Substance: LENALIDOMIDE
     Dosage: CYCLE 4
     Route: 048
     Dates: start: 20230419, end: 20230509
  23. LENALIDOMIDE [Suspect]
     Active Substance: LENALIDOMIDE
     Dosage: CYCLE 9
     Route: 048
     Dates: start: 20230906
  24. LENALIDOMIDE [Suspect]
     Active Substance: LENALIDOMIDE
     Dosage: CYCLE 6
     Route: 048
     Dates: start: 20230614, end: 20230707
  25. LENALIDOMIDE [Suspect]
     Active Substance: LENALIDOMIDE
     Dosage: CYCLE 5
     Route: 048
     Dates: start: 20230517, end: 20230606
  26. DARZALEX [Suspect]
     Active Substance: DARATUMUMAB
     Indication: Plasma cell myeloma
     Dosage: CYCLE 1
     Route: 042
     Dates: start: 20230201
  27. DARZALEX [Suspect]
     Active Substance: DARATUMUMAB
     Dosage: CYCLE 1
     Route: 042
     Dates: start: 20230125
  28. DARZALEX [Suspect]
     Active Substance: DARATUMUMAB
     Dosage: CYCLE 2
     Route: 042
     Dates: start: 20230301
  29. DARZALEX [Suspect]
     Active Substance: DARATUMUMAB
     Dosage: CYCLE 2
     Route: 042
     Dates: start: 20230222
  30. DARZALEX [Suspect]
     Active Substance: DARATUMUMAB
     Dosage: CYCLE 1
     Route: 042
     Dates: start: 20230118
  31. DARZALEX [Suspect]
     Active Substance: DARATUMUMAB
     Route: 042
     Dates: start: 20230117
  32. DARZALEX [Suspect]
     Active Substance: DARATUMUMAB
     Dosage: CYCLE 1
     Route: 042
     Dates: start: 20230117
  33. DARZALEX [Suspect]
     Active Substance: DARATUMUMAB
     Dosage: CYCLE 2
     Route: 042
     Dates: start: 20230308
  34. DARZALEX [Suspect]
     Active Substance: DARATUMUMAB
     Dosage: CYCLE 5
     Route: 042
     Dates: start: 20230517
  35. DARZALEX [Suspect]
     Active Substance: DARATUMUMAB
     Dosage: CYCLE 7
     Route: 042
     Dates: start: 20230712
  36. DARZALEX [Suspect]
     Active Substance: DARATUMUMAB
     Dosage: CYCLE 4
     Route: 042
     Dates: start: 20230419
  37. DARZALEX [Suspect]
     Active Substance: DARATUMUMAB
     Dosage: CYCLE 9
     Route: 042
     Dates: start: 20230906
  38. DARZALEX [Suspect]
     Active Substance: DARATUMUMAB
     Dosage: CYCLE 6
     Route: 042
     Dates: start: 20230628
  39. DARZALEX [Suspect]
     Active Substance: DARATUMUMAB
     Dosage: CYCLE 9
     Route: 042
     Dates: start: 20230503
  40. DARZALEX [Suspect]
     Active Substance: DARATUMUMAB
     Dosage: CYCLE 8
     Route: 042
     Dates: start: 20230809
  41. DARZALEX [Suspect]
     Active Substance: DARATUMUMAB
     Dosage: CYCLE 3
     Route: 042
     Dates: start: 20230322
  42. DARZALEX [Suspect]
     Active Substance: DARATUMUMAB
     Dosage: CYCLE 5
     Route: 042
     Dates: start: 20230531
  43. DARZALEX [Suspect]
     Active Substance: DARATUMUMAB
     Dosage: CYCLE 3
     Route: 042
     Dates: start: 20230405
  44. DARZALEX [Suspect]
     Active Substance: DARATUMUMAB
     Dosage: CYCLE 2
     Route: 042
     Dates: start: 20230315
  45. DARZALEX [Suspect]
     Active Substance: DARATUMUMAB
     Dosage: CYCLE 6
     Route: 042
     Dates: start: 20230614
  46. CLEMASTINE [Concomitant]
     Active Substance: CLEMASTINE
     Indication: Prophylaxis
     Route: 042
     Dates: start: 20230117
  47. ACETAMINOPHEN [Concomitant]
     Active Substance: ACETAMINOPHEN
     Indication: Prophylaxis
     Route: 048
     Dates: start: 20230117
  48. ACETAMINOPHEN [Concomitant]
     Active Substance: ACETAMINOPHEN
     Indication: Pelvic pain
     Dosage: PM (AS NEEDED)
     Route: 048
     Dates: start: 20230112
  49. RAMIPRIL [Concomitant]
     Active Substance: RAMIPRIL
     Indication: Hypertension
     Route: 048
  50. FOLIC ACID [Concomitant]
     Active Substance: FOLIC ACID
     Indication: Folate deficiency
     Route: 048
     Dates: start: 20221027
  51. SULFAMETHOXAZOLE\TRIMETHOPRIM [Concomitant]
     Active Substance: SULFAMETHOXAZOLE\TRIMETHOPRIM
     Indication: Prophylaxis
     Route: 048
     Dates: start: 20230112
  52. MONTELUKAST [Concomitant]
     Active Substance: MONTELUKAST SODIUM
     Indication: Prophylaxis
     Route: 048
     Dates: start: 20230117
  53. ESTRIOL [Concomitant]
     Active Substance: ESTRIOL
     Indication: Prophylaxis
  54. METAMIZOLE [Concomitant]
     Active Substance: METAMIZOLE
     Indication: Pelvic pain
     Dosage: PM (AS NEEDED)
     Route: 048
     Dates: start: 20221027
  55. SPIRONOLACTONE [Concomitant]
     Active Substance: SPIRONOLACTONE
     Indication: Hypertension
     Route: 048
  56. ACYCLOVIR [Concomitant]
     Active Substance: ACYCLOVIR
     Indication: Prophylaxis
     Route: 048
     Dates: start: 20230112
  57. TIMOLOL MALEATE [Concomitant]
     Active Substance: TIMOLOL MALEATE
     Indication: Glaucoma
     Dosage: 0.25
     Route: 061
  58. PANTOPRAZOLE [Concomitant]
     Active Substance: PANTOPRAZOLE
     Indication: Prophylaxis
     Route: 048
     Dates: start: 20230628

REACTIONS (2)
  - Leukopenia [Recovered/Resolved]
  - Neutropenia [Recovered/Resolved]

NARRATIVE: CASE EVENT DATE: 20230201
